FAERS Safety Report 9410298 (Version 7)
Quarter: 2017Q1

REPORT INFORMATION
  Report Type: Spontaneous
  Country: US (occurrence: US)
  Receive Date: 20130719
  Receipt Date: 20170315
  Transmission Date: 20170429
  Serious: Yes (Hospitalization, Other)
  Sender: FDA-Public Use
  Company Number: US-PFIZER INC-2013210446

PATIENT
  Age: 58 Year
  Sex: Male
  Weight: 72.6 kg

DRUGS (12)
  1. MELATONIN [Concomitant]
     Active Substance: MELATONIN
     Dosage: 3 MG, AS NEEDED (1 CAPSULE (OF 3 MG) CAPSULE ORAL AT BEDTIME PRN)
     Route: 048
  2. PULMICORT TURBUHALER [Concomitant]
     Active Substance: BUDESONIDE
     Indication: LUNG DISORDER
     Dosage: 180 UG, 1X/DAY
     Route: 055
     Dates: start: 2007
  3. SPIRIVA [Concomitant]
     Active Substance: TIOTROPIUM BROMIDE MONOHYDRATE
     Indication: LUNG DISORDER
  4. CELEBREX [Concomitant]
     Active Substance: CELECOXIB
     Dosage: 1 DF, 1X/DAY (1 TABLET CAPSULE ORAL DAILY)
     Route: 048
  5. CELEBREX [Concomitant]
     Active Substance: CELECOXIB
     Dosage: UNK
  6. XALKORI [Suspect]
     Active Substance: CRIZOTINIB
     Dosage: 250 MG, 2X/DAY
     Route: 048
     Dates: start: 201309
  7. SPIRIVA [Concomitant]
     Active Substance: TIOTROPIUM BROMIDE MONOHYDRATE
     Indication: DYSPNOEA
     Dosage: 18 UG, 1X/DAY
     Route: 055
     Dates: start: 2007
  8. XALKORI [Suspect]
     Active Substance: CRIZOTINIB
     Indication: NON-SMALL CELL LUNG CANCER STAGE IV
     Dosage: 250 MG, 2X/DAY
     Route: 048
     Dates: start: 20121018
  9. XALKORI [Suspect]
     Active Substance: CRIZOTINIB
     Dosage: 250 MG, 2X/DAY
     Route: 048
     Dates: start: 201409, end: 20170124
  10. PROTONIX [Concomitant]
     Active Substance: PANTOPRAZOLE SODIUM
     Indication: GASTROOESOPHAGEAL REFLUX DISEASE
     Dosage: 40 MG, 1X/DAY
     Dates: start: 201506
  11. COUMADIN [Concomitant]
     Active Substance: WARFARIN SODIUM
     Indication: THROMBOSIS
     Dosage: 5 MG, DAILY
     Dates: start: 2014, end: 201609
  12. MELATONIN [Concomitant]
     Active Substance: MELATONIN
     Dosage: UNK, AS NEEDED  (2 X WEEK)

REACTIONS (10)
  - Pulmonary fibrosis [Not Recovered/Not Resolved]
  - Hyperhidrosis [Recovered/Resolved]
  - Hypotension [Unknown]
  - Oedema peripheral [Recovered/Resolved]
  - Pulmonary thrombosis [Recovered/Resolved]
  - Dizziness [Not Recovered/Not Resolved]
  - Sinus bradycardia [Not Recovered/Not Resolved]
  - Pulmonary embolism [Recovering/Resolving]
  - Alopecia [Recovered/Resolved]
  - Pain [Not Recovered/Not Resolved]

NARRATIVE: CASE EVENT DATE: 201312
